FAERS Safety Report 11591457 (Version 1)
Quarter: 2015Q4

REPORT INFORMATION
  Report Type: Spontaneous
  Country: BR (occurrence: BR)
  Receive Date: 20151005
  Receipt Date: 20151005
  Transmission Date: 20160304
  Serious: No
  Sender: FDA-Public Use
  Company Number: BR-NOVEN PHARMACEUTICALS, INC.-14BR010269

PATIENT
  Age: 61 Year
  Sex: Female

DRUGS (5)
  1. PIZOTIFEN [Concomitant]
     Active Substance: PIZOTYLINE
     Indication: VOMITING
  2. SANDOMIGRAN [Concomitant]
     Active Substance: PIZOTYLINE
     Indication: PRODUCT USED FOR UNKNOWN INDICATION
     Dosage: 0.5 MG, QD
     Route: 048
  3. PIZOTIFEN [Concomitant]
     Active Substance: PIZOTYLINE
     Indication: MIGRAINE
     Dosage: 1 DF, BEDTIME
     Route: 048
  4. PIZOTIFEN [Concomitant]
     Active Substance: PIZOTYLINE
     Indication: VISION BLURRED
  5. ESTRADIOL/NORETHINDRONE ACETATE [Suspect]
     Active Substance: ESTRADIOL\NORETHINDRONE ACETATE
     Indication: HORMONE REPLACEMENT THERAPY
     Dosage: UNK

REACTIONS (1)
  - Insomnia [Not Recovered/Not Resolved]
